FAERS Safety Report 5035383-5 (Version None)
Quarter: 2006Q2

REPORT INFORMATION
  Report Type: 
  Country: None (occurrence: None)
  Receive Date: 20060627
  Receipt Date: 20060606
  Transmission Date: 20061013
  Serious: Yes (Hospitalization, Other)
  Sender: FDA-Public Use
  Company Number: JP-MERCK-0606USA02427

PATIENT
  Age: 91 Year
  Sex: Female
  Weight: 42 kg

DRUGS (12)
  1. PRIMAXIN [Suspect]
     Indication: PYELONEPHRITIS
     Route: 042
     Dates: start: 20060512, end: 20060515
  2. PRIMAXIN [Suspect]
     Route: 042
     Dates: start: 20060602, end: 20060606
  3. MAXIPIME [Concomitant]
     Indication: PYELONEPHRITIS
     Route: 042
     Dates: start: 20060529, end: 20060602
  4. DASEN [Concomitant]
     Route: 048
  5. TRANSAMIN [Concomitant]
     Route: 065
  6. ADONA [Concomitant]
     Route: 065
  7. WARFARIN POTASSIUM [Concomitant]
     Indication: THROMBOSIS PROPHYLAXIS
     Route: 048
     Dates: start: 20060507, end: 20060531
  8. HERBESSER [Concomitant]
     Indication: HYPERTENSION
     Route: 048
  9. CIMETIDINE [Concomitant]
     Indication: GASTROINTESTINAL DISORDER
     Route: 048
  10. ZOPICOOL [Concomitant]
     Indication: INSOMNIA
     Route: 048
  11. CLOTIAZEPAM [Concomitant]
     Indication: INSOMNIA
     Route: 048
  12. MAGNESIUM OXIDE [Concomitant]
     Route: 048

REACTIONS (2)
  - PLATELET COUNT DECREASED [None]
  - PURPURA [None]
